FAERS Safety Report 22976758 (Version 4)
Quarter: 2023Q4

REPORT INFORMATION
  Report Type: Report from Study
  Country: US (occurrence: US)
  Receive Date: 20230925
  Receipt Date: 20231206
  Transmission Date: 20240110
  Serious: No
  Sender: FDA-Public Use
  Company Number: US-002147023-NVSC2023US206387

PATIENT
  Sex: Male

DRUGS (1)
  1. ENTRESTO [Suspect]
     Active Substance: SACUBITRIL\VALSARTAN
     Indication: Product used for unknown indication
     Dosage: 1 DOSAGE FORM, BID
     Route: 065
     Dates: start: 2022

REACTIONS (11)
  - Hypertension [Unknown]
  - Asthenia [Unknown]
  - Dyspnoea [Unknown]
  - Decreased appetite [Unknown]
  - Nasal congestion [Unknown]
  - Sinus congestion [Unknown]
  - Poor quality sleep [Unknown]
  - Feeling abnormal [Unknown]
  - Drug ineffective [Unknown]
  - Intentional dose omission [Unknown]
  - Off label use [Unknown]
